FAERS Safety Report 14202676 (Version 2)
Quarter: 2017Q4

REPORT INFORMATION
  Report Type: Spontaneous
  Country: JP (occurrence: JP)
  Receive Date: 20171118
  Receipt Date: 20171212
  Transmission Date: 20180321
  Serious: Yes (Other)
  Sender: FDA-Public Use
  Company Number: JP-ROCHE-2026483

PATIENT
  Age: 60 Year
  Sex: Male
  Weight: 63 kg

DRUGS (27)
  1. XELODA [Suspect]
     Active Substance: CAPECITABINE
     Indication: RECTAL CANCER
     Dosage: THE SECOND ADMINISTERING/[YASUKUSURI] ON THE FIFTH
     Route: 048
     Dates: start: 20140317, end: 20140502
  2. XELODA [Suspect]
     Active Substance: CAPECITABINE
     Indication: RECTAL CANCER
     Dosage: THE SECOND ADMINISTERING/[YASUKUSURI] ON THE FIFTH
     Route: 048
     Dates: start: 20140505, end: 20171016
  3. AMLODIN [Suspect]
     Active Substance: AMLODIPINE BESYLATE
     Indication: PRODUCT USED FOR UNKNOWN INDICATION
     Route: 048
     Dates: start: 200506, end: 20171017
  4. AMARYL [Suspect]
     Active Substance: GLIMEPIRIDE
     Indication: PRODUCT USED FOR UNKNOWN INDICATION
     Route: 048
     Dates: start: 20120519, end: 20171017
  5. SALAZOPYRIN [Suspect]
     Active Substance: SULFASALAZINE
     Indication: PRODUCT USED FOR UNKNOWN INDICATION
     Route: 048
     Dates: start: 20150418, end: 20171017
  6. DEPAS (JAPAN) [Concomitant]
     Route: 048
     Dates: end: 20171017
  7. AVASTIN [Suspect]
     Active Substance: BEVACIZUMAB
     Indication: RECTAL CANCER
     Dosage: IT IS ONE ADMINISTERING WEEKLY HOLIDAY MEDICINE FOR TWO WEEKS. ?THE FRACTIONATION DOSE FREQUENCY IS
     Route: 041
     Dates: start: 201011
  8. PASTARON [Concomitant]
     Active Substance: UREA
     Dosage: THE FRACTIONATION DOSE FREQUENCY IS UNCERTAIN. ?DOSE INTERVAL UNCERTAINTY
     Route: 003
  9. ELPLAT [Suspect]
     Active Substance: OXALIPLATIN
     Indication: RECTAL CANCER
     Dosage: IT IS ONE ADMINISTERING WEEKLY HOLIDAY MEDICINE FOR TWO WEEKS. ?THE FRACTIONATION DOSE FREQUENCY IS
     Route: 041
     Dates: start: 201005, end: 201010
  10. LYRICA [Suspect]
     Active Substance: PREGABALIN
     Indication: PRODUCT USED FOR UNKNOWN INDICATION
     Route: 048
     Dates: start: 20160514, end: 20171017
  11. CAMPTO [Suspect]
     Active Substance: IRINOTECAN
     Indication: RECTAL CANCER
     Dosage: IT IS ADMINISTER/ONE WEEKLY HOLIDAY MEDICINE FOR TWO WEEKS. ?DOSE INTERVAL UNCERTAINTY
     Route: 041
     Dates: start: 201011, end: 20151009
  12. VECTIBIX [Suspect]
     Active Substance: PANITUMUMAB
     Indication: PRODUCT USED FOR UNKNOWN INDICATION
     Dosage: DOSAGE IS UNCERTAIN.
     Route: 065
  13. METGLUCO [Suspect]
     Active Substance: METFORMIN HYDROCHLORIDE
     Indication: PRODUCT USED FOR UNKNOWN INDICATION
     Route: 048
     Dates: start: 20140412, end: 20171017
  14. MUCODYNE [Concomitant]
     Active Substance: CARBOCYSTEINE
     Route: 048
  15. PANTOSIN [Concomitant]
     Active Substance: PANTETHINE
     Route: 048
     Dates: end: 20171017
  16. EURAX H [Concomitant]
     Dosage: THE FRACTIONATION DOSE FREQUENCY IS UNCERTAIN. ?DOSE INTERVAL UNCERTAINTY
     Route: 003
  17. XELODA [Suspect]
     Active Substance: CAPECITABINE
     Indication: RECTAL CANCER
     Dosage: DOSAGE IS UNCERTAIN.
     Route: 048
     Dates: start: 201005, end: 201010
  18. XELODA [Suspect]
     Active Substance: CAPECITABINE
     Indication: RECTAL CANCER
     Dosage: THE SECOND ADMINISTERING/[YASUKUSURI] ON THE FIFTH
     Route: 048
     Dates: start: 20130722, end: 20140314
  19. IRINOTECAN HYDROCHLORIDE TRIHYDRATE [Suspect]
     Active Substance: IRINOTECAN HYDROCHLORIDE
     Indication: RECTAL CANCER
     Dosage: IT IS ADMINISTER/ONE WEEKLY HOLIDAY MEDICINE FOR TWO WEEKS. ?DOSE INTERVAL UNCERTAINTY
     Route: 041
     Dates: start: 20151023, end: 20170224
  20. IRINOTECAN HYDROCHLORIDE TRIHYDRATE [Suspect]
     Active Substance: IRINOTECAN HYDROCHLORIDE
     Indication: RECTAL CANCER
     Dosage: IT IS ADMINISTER/ONE WEEKLY HOLIDAY MEDICINE FOR TWO WEEKS. ?DOSE INTERVAL UNCERTAINTY
     Route: 041
     Dates: start: 20170307, end: 20170929
  21. PYDOXAL [Concomitant]
     Active Substance: PYRIDOXAL
     Route: 048
     Dates: end: 20171017
  22. ASPIRIN. [Concomitant]
     Active Substance: ASPIRIN
     Route: 048
     Dates: end: 20171017
  23. PARIET [Concomitant]
     Active Substance: RABEPRAZOLE SODIUM
     Route: 048
     Dates: end: 20171017
  24. MUCOSTA [Concomitant]
     Active Substance: REBAMIPIDE
     Route: 048
     Dates: end: 20171017
  25. KRESTIN [Concomitant]
     Active Substance: POLYSACCHARIDE-K
     Route: 048
     Dates: end: 20171017
  26. XELODA [Suspect]
     Active Substance: CAPECITABINE
     Indication: RECTAL CANCER
     Dosage: [YASUKUSURI] AT SATURDAY AND SUNDAY?THE SECOND ADMINISTERING/[YASUKUSURI] ON THE FIFTH
     Route: 048
     Dates: start: 201011, end: 20130718
  27. MUCODYNE [Concomitant]
     Active Substance: CARBOCYSTEINE
     Route: 048
     Dates: end: 20171017

REACTIONS (12)
  - Carcinoembryonic antigen increased [Unknown]
  - Carotid artery thrombosis [Unknown]
  - Gastric ulcer [Unknown]
  - Pruritus [Unknown]
  - Amaurosis [Unknown]
  - Rhinorrhoea [Unknown]
  - Neurosis [Unknown]
  - Interstitial lung disease [Recovering/Resolving]
  - Bronchitis chronic [Unknown]
  - Constipation [Unknown]
  - Xeroderma [Unknown]
  - Diabetes mellitus [Unknown]

NARRATIVE: CASE EVENT DATE: 201106
